FAERS Safety Report 9400092 (Version 2)
Quarter: 2013Q3

REPORT INFORMATION
  Report Type: Report from Study
  Country: AU (occurrence: AU)
  Receive Date: 20130715
  Receipt Date: 20130730
  Transmission Date: 20140515
  Serious: Yes (Other)
  Sender: FDA-Public Use
  Company Number: AU-SANOFI-AVENTIS-2013SA067988

PATIENT
  Age: 36 Year
  Sex: Female
  Weight: 93 kg

DRUGS (10)
  1. AUBAGIO [Suspect]
     Indication: CONCENTRIC SCLEROSIS
     Route: 048
     Dates: start: 20130222
  2. LAMICTAL [Concomitant]
     Route: 048
  3. RITALIN [Concomitant]
     Route: 048
  4. DITROPAN [Concomitant]
     Route: 048
  5. ENDEP [Concomitant]
     Route: 048
  6. LYRICA [Concomitant]
     Route: 065
  7. OXYCONTIN [Concomitant]
     Route: 048
  8. ENDONE [Concomitant]
     Route: 065
  9. VOLTAREN [Concomitant]
     Route: 065
  10. PANADOL [Concomitant]
     Route: 065

REACTIONS (3)
  - Appendicectomy [Recovered/Resolved]
  - Liver function test abnormal [Recovering/Resolving]
  - Vulvovaginal candidiasis [Recovered/Resolved]
